FAERS Safety Report 13309937 (Version 1)
Quarter: 2017Q1

REPORT INFORMATION
  Report Type: Spontaneous
  Country: US (occurrence: US)
  Receive Date: 20170308
  Receipt Date: 20170308
  Transmission Date: 20170428
  Serious: No
  Sender: FDA-Public Use
  Company Number: None

PATIENT
  Age: 33 Year
  Sex: Female

DRUGS (1)
  1. PROGESTERONE IN SESAME OIL 50MG/ML FRESENIUS KABI USA, LLC [Suspect]
     Active Substance: PROGESTERONE
     Indication: PREGNANCY
     Dosage: 2.4 ML )(120MG) DAILY INTRAMUSCULAR
     Route: 030
     Dates: start: 20170228, end: 20170304

REACTIONS (2)
  - Progesterone decreased [None]
  - Product quality issue [None]

NARRATIVE: CASE EVENT DATE: 20170305
